FAERS Safety Report 13611670 (Version 2)
Quarter: 2017Q3

REPORT INFORMATION
  Report Type: Other
  Country: None (occurrence: CO)
  Receive Date: 20170605
  Receipt Date: 20170720
  Transmission Date: 20171127
  Serious: Yes (Other)
  Sender: FDA-Public Use
  Company Number: CO-POPULATION COUNCIL, INC.-2021552

PATIENT
  Age: 26 Year
  Sex: Female

DRUGS (1)
  1. JADELLE [Suspect]
     Active Substance: LEVONORGESTREL
     Indication: CONTRACEPTION
     Route: 059
     Dates: start: 201603, end: 20170525

REACTIONS (8)
  - Pregnancy with implant contraceptive [Recovered/Resolved]
  - Pelvic pain [Unknown]
  - Menstruation irregular [Unknown]
  - Malaise [Unknown]
  - Abortion spontaneous [Unknown]
  - Breast pain [Unknown]
  - Genital haemorrhage [Recovered/Resolved]
  - Drug ineffective [None]

NARRATIVE: CASE EVENT DATE: 201603
